FAERS Safety Report 4509643-8 (Version None)
Quarter: 2004Q4

REPORT INFORMATION
  Report Type: 
  Country: None (occurrence: None)
  Receive Date: 20041119
  Receipt Date: 20041102
  Transmission Date: 20050328
  Serious: Yes (Hospitalization)
  Sender: FDA-Public Use
  Company Number: US_0411107856

PATIENT
  Sex: Female
  Weight: 72 kg

DRUGS (4)
  1. HUMULIN-HUMAN INSULIN (RDNA) UNKNOWN FORMULATION (HU [Suspect]
     Dates: start: 20020101, end: 20030301
  2. HUMULIN R [Suspect]
     Dates: start: 20041101
  3. GLUCERNA [Concomitant]
  4. STOOL SOFTNER (DOCUSATE SODIUM) [Concomitant]

REACTIONS (13)
  - CARDIAC DISORDER [None]
  - CONSTIPATION [None]
  - DIARRHOEA [None]
  - EATING DISORDER [None]
  - GASTRIC DISORDER [None]
  - INJECTION SITE ERYTHEMA [None]
  - MALAISE [None]
  - NEPHROLITHIASIS [None]
  - RASH [None]
  - RENAL DISORDER [None]
  - UNEVALUABLE EVENT [None]
  - VOMITING [None]
  - WEIGHT DECREASED [None]
